FAERS Safety Report 17296335 (Version 8)
Quarter: 2020Q2

REPORT INFORMATION
  Report Type: Report from Study
  Country: US (occurrence: US)
  Receive Date: 20200122
  Receipt Date: 20200423
  Transmission Date: 20200713
  Serious: Yes (Hospitalization)
  Sender: FDA-Public Use
  Company Number: NVSC2020US010087

PATIENT
  Age: 96 Year
  Sex: Female

DRUGS (4)
  1. BEOVU [Suspect]
     Active Substance: BROLUCIZUMAB-DBLL
     Dosage: UNK
     Route: 047
     Dates: start: 20191120
  2. EYLEA [Concomitant]
     Active Substance: AFLIBERCEPT
     Indication: PRODUCT USED FOR UNKNOWN INDICATION
     Route: 065
  3. BEOVU [Suspect]
     Active Substance: BROLUCIZUMAB-DBLL
     Indication: NEOVASCULAR AGE-RELATED MACULAR DEGENERATION
     Dosage: UNK, VIAL, ONE SINGLE DOSE
     Route: 047
     Dates: start: 20191121
  4. BEOVU [Suspect]
     Active Substance: BROLUCIZUMAB-DBLL
     Dosage: UNK (IN BOTH EYES)
     Route: 047
     Dates: start: 20200116

REACTIONS (8)
  - Eye irritation [Unknown]
  - Conjunctivitis [Unknown]
  - Fall [Unknown]
  - Concomitant disease aggravated [Unknown]
  - Eye swelling [Unknown]
  - Visual impairment [Unknown]
  - Discomfort [Unknown]
  - Dry eye [Unknown]

NARRATIVE: CASE EVENT DATE: 20200114
